FAERS Safety Report 6519775-0 (Version None)
Quarter: 2009Q4

REPORT INFORMATION
  Report Type: 
  Country: None (occurrence: None)
  Receive Date: 20091228
  Receipt Date: 20091228
  Transmission Date: 20100525
  Serious: No
  Sender: FDA-Public Use
  Company Number: None

PATIENT
  Age: 55 Year
  Sex: Male

DRUGS (3)
  1. LAMOTRIGINE [Suspect]
     Indication: BIPOLAR DISORDER
     Dosage: 25 MG BID PO
     Route: 048
     Dates: start: 20090707, end: 20090730
  2. LAMOTRIGINE [Suspect]
     Indication: MANIA
     Dosage: 25 MG BID PO
     Route: 048
     Dates: start: 20090707, end: 20090730
  3. CEPHALEXIN [Suspect]
     Indication: CELLULITIS
     Dosage: 500 MG TID PO
     Route: 048
     Dates: start: 20090729, end: 20090730

REACTIONS (2)
  - RASH [None]
  - STEVENS-JOHNSON SYNDROME [None]
